FAERS Safety Report 10249988 (Version 1)
Quarter: 2014Q2

REPORT INFORMATION
  Report Type: Spontaneous
  Country: US (occurrence: US)
  Receive Date: 20140620
  Receipt Date: 20140620
  Transmission Date: 20141212
  Serious: No
  Sender: FDA-Public Use
  Company Number: US-009507513-1405USA014208

PATIENT
  Sex: Male

DRUGS (2)
  1. AFRIN SINUS SPRAY [Suspect]
     Indication: SINUS CONGESTION
     Dosage: UNK, UNKNOWN
     Route: 045
  2. AFRIN SINUS SPRAY [Suspect]
     Dosage: UNK, UNKNOWN
     Route: 045

REACTIONS (1)
  - Expired product administered [Unknown]
